FAERS Safety Report 10042529 (Version 1)
Quarter: 2014Q1

REPORT INFORMATION
  Report Type: Spontaneous
  Country: US (occurrence: US)
  Receive Date: 20140327
  Receipt Date: 20140327
  Transmission Date: 20141002
  Serious: Yes (Other)
  Sender: FDA-Public Use
  Company Number: PHEH2014US002232

PATIENT
  Sex: Female

DRUGS (1)
  1. VIVELLE DOT [Suspect]
     Dosage: 0.0375 UKN, UNK
     Route: 062

REACTIONS (2)
  - Visual acuity reduced [Unknown]
  - Product adhesion issue [Unknown]
